FAERS Safety Report 19710287 (Version 1)
Quarter: 2021Q3

REPORT INFORMATION
  Report Type: Spontaneous
  Country: JP (occurrence: JP)
  Receive Date: 20210816
  Receipt Date: 20210816
  Transmission Date: 20211014
  Serious: Yes (Hospitalization, Other)
  Sender: FDA-Public Use
  Company Number: JP-PFIZER INC-202100988244

PATIENT
  Age: 51 Year
  Sex: Male

DRUGS (7)
  1. CICLOSPORIN [Suspect]
     Active Substance: CYCLOSPORINE
     Dosage: 50 MG, 1X/DAY
     Dates: start: 201108, end: 201207
  2. MIZORIBINE [Suspect]
     Active Substance: MIZORIBINE
     Indication: IMMUNOSUPPRESSANT DRUG THERAPY
     Dosage: 100 MG, 1X/DAY
     Dates: start: 201108, end: 201207
  3. METHYLPREDNISOLONE SODIUM SUCCINATE. [Suspect]
     Active Substance: METHYLPREDNISOLONE SODIUM SUCCINATE
     Indication: KIDNEY TRANSPLANT REJECTION
  4. MIZORIBINE [Suspect]
     Active Substance: MIZORIBINE
     Dosage: 50 MG, 1X/DAY
     Dates: start: 201108, end: 201207
  5. PREDNISOLONE. [Suspect]
     Active Substance: PREDNISOLONE
     Indication: IMMUNOSUPPRESSANT DRUG THERAPY
     Dosage: 10 MG, 1X/DAY
     Dates: start: 201108, end: 201306
  6. METHYLPREDNISOLONE SODIUM SUCCINATE. [Suspect]
     Active Substance: METHYLPREDNISOLONE SODIUM SUCCINATE
     Indication: IMMUNOSUPPRESSANT DRUG THERAPY
     Dosage: UNK
     Dates: start: 201110
  7. CICLOSPORIN [Suspect]
     Active Substance: CYCLOSPORINE
     Indication: IMMUNOSUPPRESSANT DRUG THERAPY
     Dosage: 100 MG, 1X/DAY
     Dates: start: 201108, end: 201207

REACTIONS (11)
  - Ascites [Unknown]
  - Immune reconstitution inflammatory syndrome [Recovering/Resolving]
  - Cytomegalovirus chorioretinitis [Unknown]
  - Staphylococcal infection [Recovering/Resolving]
  - Pseudomonas infection [Recovering/Resolving]
  - Urinary tract infection [Unknown]
  - Cytomegalovirus gastroenteritis [Unknown]
  - Necrotising fasciitis [Recovering/Resolving]
  - Cryptococcosis [Recovering/Resolving]
  - Disseminated cryptococcosis [Unknown]
  - Prostatic abscess [Unknown]

NARRATIVE: CASE EVENT DATE: 20120712
